FAERS Safety Report 4282653-4 (Version None)
Quarter: 2004Q1

REPORT INFORMATION
  Report Type: 
  Country: None (occurrence: None)
  Receive Date: 20040130
  Receipt Date: 20030121
  Transmission Date: 20041129
  Serious: No
  Sender: FDA-Public Use
  Company Number: US-BRISTOL-MYERS SQUIBB COMPANY-12163424

PATIENT
  Age: 55 Year
  Sex: Female
  Weight: 73 kg

DRUGS (5)
  1. SERZONE [Suspect]
     Indication: STRESS SYMPTOMS
     Dosage: STARTER PACK;25 MG IN THE EVENING ON 1/19;1/20 ONCE IN THE AM AND ONCE AT BEDTIME
     Route: 048
     Dates: start: 20030119
  2. LISINOPRIL [Concomitant]
  3. HYDROCHLOROTHIAZIDE [Concomitant]
  4. SYNTHROID [Concomitant]
  5. ESTROPIPATE [Concomitant]

REACTIONS (1)
  - PRURITUS GENERALISED [None]
